FAERS Safety Report 5492710-2 (Version None)
Quarter: 2007Q4

REPORT INFORMATION
  Report Type: 
  Country: None (occurrence: None)
  Receive Date: 20071019
  Receipt Date: 20071010
  Transmission Date: 20080405
  Serious: Yes (Hospitalization)
  Sender: FDA-Public Use
  Company Number: MEDI-0006039

PATIENT
  Sex: Female
  Weight: 5.36 kg

DRUGS (5)
  1. SYNAGIS [Suspect]
     Indication: ANTIVIRAL PROPHYLAXIS
     Dosage: 15 MG/KG, INTRAMUSCULAR; 15 MG/KG, INTRAMUSCULAR; 15 MG/KG, INTRAMUSCULAR; 15 MG/KG, INTRAMUSCULAR;
     Route: 030
     Dates: start: 20061010, end: 20061109
  2. SYNAGIS [Suspect]
     Indication: ANTIVIRAL PROPHYLAXIS
     Dosage: 15 MG/KG, INTRAMUSCULAR; 15 MG/KG, INTRAMUSCULAR; 15 MG/KG, INTRAMUSCULAR; 15 MG/KG, INTRAMUSCULAR;
     Route: 030
     Dates: start: 20061010
  3. SYNAGIS [Suspect]
     Indication: ANTIVIRAL PROPHYLAXIS
     Dosage: 15 MG/KG, INTRAMUSCULAR; 15 MG/KG, INTRAMUSCULAR; 15 MG/KG, INTRAMUSCULAR; 15 MG/KG, INTRAMUSCULAR;
     Route: 030
     Dates: start: 20061212
  4. SYNAGIS [Suspect]
     Indication: ANTIVIRAL PROPHYLAXIS
     Dosage: 15 MG/KG, INTRAMUSCULAR; 15 MG/KG, INTRAMUSCULAR; 15 MG/KG, INTRAMUSCULAR; 15 MG/KG, INTRAMUSCULAR;
     Route: 030
     Dates: start: 20070116
  5. SYNAGIS [Suspect]
     Indication: ANTIVIRAL PROPHYLAXIS
     Dosage: 15 MG/KG, INTRAMUSCULAR; 15 MG/KG, INTRAMUSCULAR; 15 MG/KG, INTRAMUSCULAR; 15 MG/KG, INTRAMUSCULAR;
     Route: 030
     Dates: start: 20070220

REACTIONS (1)
  - RESPIRATORY DISORDER [None]
